FAERS Safety Report 13187359 (Version 2)
Quarter: 2017Q2

REPORT INFORMATION
  Report Type: Report from Study
  Country: US (occurrence: US)
  Receive Date: 20170206
  Receipt Date: 20170530
  Transmission Date: 20170830
  Serious: Yes (Death, Hospitalization, Other)
  Sender: FDA-Public Use
  Company Number: US-GILEAD-2017-0256257

PATIENT
  Age: 71 Year
  Sex: Male

DRUGS (17)
  1. ENOXAPARIN [Concomitant]
     Active Substance: ENOXAPARIN
  2. AMBRISENTAN [Suspect]
     Active Substance: AMBRISENTAN
     Indication: PULMONARY ARTERIAL HYPERTENSION
     Dosage: 10 MG, QD
     Route: 065
     Dates: start: 20120523, end: 2017
  3. DIGOXIN. [Concomitant]
     Active Substance: DIGOXIN
  4. KCL [Concomitant]
     Active Substance: POTASSIUM CHLORIDE
  5. SPIRONOLACTONE. [Concomitant]
     Active Substance: SPIRONOLACTONE
  6. LEVOTHYROXINE. [Concomitant]
     Active Substance: LEVOTHYROXINE
  7. SILDENAFIL. [Concomitant]
     Active Substance: SILDENAFIL
     Indication: PULMONARY ARTERIAL HYPERTENSION
     Dates: start: 20120523
  8. LIPITOR [Concomitant]
     Active Substance: ATORVASTATIN CALCIUM
  9. LORATADINE. [Concomitant]
     Active Substance: LORATADINE
  10. ALLOPURINOL. [Concomitant]
     Active Substance: ALLOPURINOL
  11. TYVASO [Concomitant]
     Active Substance: TREPROSTINIL
  12. WARFARIN [Concomitant]
     Active Substance: WARFARIN
  13. FUROSEMIDE. [Concomitant]
     Active Substance: FUROSEMIDE
  14. VENTOLIN [Concomitant]
     Active Substance: ALBUTEROL SULFATE
  15. VITAMINS WITH MINERALS [Concomitant]
     Active Substance: MINERALS\VITAMINS
  16. ZOLPIDEM [Concomitant]
     Active Substance: ZOLPIDEM\ZOLPIDEM TARTRATE
  17. AMIODARONE [Concomitant]
     Active Substance: AMIODARONE

REACTIONS (3)
  - Syncope [Not Recovered/Not Resolved]
  - Fall [Unknown]
  - Death [Fatal]

NARRATIVE: CASE EVENT DATE: 2017
